FAERS Safety Report 5078074-7 (Version None)
Quarter: 2006Q3

REPORT INFORMATION
  Report Type: 
  Country: None (occurrence: None)
  Receive Date: 20060808
  Receipt Date: 20060725
  Transmission Date: 20061208
  Serious: Yes (Life-Threatening, Hospitalization, Other)
  Sender: FDA-Public Use
  Company Number: JP200607000242

PATIENT
  Age: 71 Year
  Sex: Female
  Weight: 38.6 kg

DRUGS (7)
  1. GEMZAR [Suspect]
     Indication: OVARIAN CANCER
     Dosage: 1000 MG/M2, OTHER, INTRAVENOUS
     Route: 042
     Dates: start: 20060606, end: 20060627
  2. DOCETAXEL (DOCETAXEL) [Concomitant]
  3. FENTANYL [Concomitant]
  4. NORTRIPTYLINE HCL [Concomitant]
  5. ENALAPRIL MALEATE [Concomitant]
  6. WARFARIN SODIUM [Concomitant]
  7. METILDIGOXIN (METILDIGOXIN) [Concomitant]

REACTIONS (7)
  - CONDITION AGGRAVATED [None]
  - DELIRIUM [None]
  - PLEURAL EFFUSION [None]
  - PNEUMONITIS [None]
  - PSYCHOTIC DISORDER [None]
  - PULMONARY OEDEMA [None]
  - PYREXIA [None]
